FAERS Safety Report 17042291 (Version 1)
Quarter: 2019Q4

REPORT INFORMATION
  Report Type: Spontaneous
  Country: US (occurrence: US)
  Receive Date: 20191114
  Receipt Date: 20191114
  Transmission Date: 20200122
  Serious: No
  Sender: FDA-Public Use
  Company Number: None

PATIENT
  Age: 47 Year
  Sex: Female
  Weight: 90 kg

DRUGS (1)
  1. HEEL BALM WITH CBD AND MENTHOL [Suspect]
     Active Substance: CANNABIDIOL\HERBALS\MENTHOL
     Indication: FIBROMYALGIA
     Route: 061
     Dates: start: 20191110, end: 20191110

REACTIONS (1)
  - Application site pain [None]
